FAERS Safety Report 10818494 (Version 2)
Quarter: 2015Q2

REPORT INFORMATION
  Report Type: Spontaneous
  Country: BR (occurrence: BR)
  Receive Date: 20150218
  Receipt Date: 20150608
  Transmission Date: 20150821
  Serious: Yes (Other)
  Sender: FDA-Public Use
  Company Number: BR-PFIZER INC-2015055083

PATIENT
  Age: 88 Year
  Sex: Male

DRUGS (6)
  1. CARDURAN XL [Suspect]
     Active Substance: DOXAZOSIN MESYLATE
     Indication: PROSTATIC DISORDER
     Dosage: 4 MG DAILY
  2. SUSTRATE [Concomitant]
     Active Substance: PROPATYL NITRATE
     Indication: BLOOD PRESSURE ABNORMAL
     Dosage: UNK
     Dates: start: 2010
  3. VERTIZINE D [Concomitant]
     Active Substance: DIHYDROERGOCRISTINE
     Indication: LABYRINTHITIS
     Dosage: UNK
  4. FINASTERIDE. [Concomitant]
     Active Substance: FINASTERIDE
     Indication: PROSTATIC DISORDER
     Dosage: UNK
     Dates: start: 2010
  5. HYDROCHLOROTHIAZIDE. [Concomitant]
     Active Substance: HYDROCHLOROTHIAZIDE
     Indication: BLOOD PRESSURE ABNORMAL
  6. VASOPRIL [Concomitant]
     Active Substance: FOSINOPRIL
     Indication: BLOOD PRESSURE ABNORMAL
     Dosage: UNK

REACTIONS (4)
  - Drug ineffective [Recovered/Resolved]
  - Prostatic disorder [Recovered/Resolved]
  - Urinary tract infection [Recovered/Resolved]
  - Wrong technique in drug usage process [Not Recovered/Not Resolved]

NARRATIVE: CASE EVENT DATE: 201502
